FAERS Safety Report 9324092 (Version 1)
Quarter: 2013Q2

REPORT INFORMATION
  Report Type: Spontaneous
  Country: GB (occurrence: GB)
  Receive Date: 20130603
  Receipt Date: 20130603
  Transmission Date: 20140414
  Serious: Yes (Other)
  Sender: FDA-Public Use
  Company Number: GB-TEVA-407986ISR

PATIENT
  Age: 71 Year
  Sex: Female

DRUGS (3)
  1. BECLOMETASONE [Suspect]
     Dosage: 2 PUFFS TWICE A DAY.
     Route: 045
     Dates: start: 20130215, end: 201302
  2. FOLIC ACID [Concomitant]
  3. ANTIBIOTICS [Concomitant]

REACTIONS (1)
  - Anosmia [Not Recovered/Not Resolved]
